FAERS Safety Report 8986106 (Version 1)
Quarter: 2013Q1

REPORT INFORMATION
  Report Type: Spontaneous
  Country: US (occurrence: None)
  Receive Date: 20121219
  Receipt Date: 20121219
  Transmission Date: 20140127
  Serious: Yes (Life-Threatening, Hospitalization)
  Sender: FDA-Public Use
  Company Number: None

PATIENT
  Age: 61 Year
  Sex: Male
  Weight: 72.58 kg

DRUGS (7)
  1. DEXAMETHASONE [Suspect]
     Dosage: DEXAMETHASONE DAY OF AND DAY AFTER VELCADE
     Route: 048
     Dates: start: 20120731, end: 20120907
  2. ASA [Suspect]
     Route: 048
     Dates: start: 20120731, end: 20120922
  3. REVLIMID [Concomitant]
  4. SENNA [Concomitant]
  5. ACTOS [Concomitant]
  6. LOTREL (AMLODIPINE/BENAZEPRIL) [Concomitant]
  7. VELCADE [Concomitant]

REACTIONS (2)
  - Aphasia [None]
  - Gastrointestinal haemorrhage [None]
